FAERS Safety Report 7928415-5 (Version None)
Quarter: 2011Q4

REPORT INFORMATION
  Report Type: 
  Country: None (occurrence: None)
  Receive Date: 20111118
  Receipt Date: 20111116
  Transmission Date: 20120403
  Serious: Yes (Death, Hospitalization, Other)
  Sender: FDA-Public Use
  Company Number: US-AMGEN-USASP2011052465

PATIENT
  Age: 83 Year
  Sex: Male
  Weight: 78.005 kg

DRUGS (18)
  1. ISOSORBIDE DINITRATE [Concomitant]
  2. CORTICOSTEROIDS [Concomitant]
  3. LISINOPRIL [Concomitant]
     Dosage: 20 MG, UNK
  4. OMEPRAZOLE [Concomitant]
     Dosage: 20 MG, BID
  5. VITAMIN C                          /00008001/ [Concomitant]
     Dosage: 500 G, QD
  6. AMLODIPINE [Concomitant]
  7. ROSUVASTATIN [Concomitant]
  8. VICODIN [Concomitant]
  9. NPLATE [Suspect]
     Indication: IDIOPATHIC THROMBOCYTOPENIC PURPURA
     Dosage: 4 MUG/KG, QWK
     Route: 058
     Dates: start: 20110310, end: 20110818
  10. SIMVASTATIN [Concomitant]
     Dosage: 40 G, QD
  11. POTASSIUM CHLORIDE [Concomitant]
     Dosage: 8 MEQ, QD
  12. NORCO [Concomitant]
  13. MULTIVITAMIN                       /00097801/ [Concomitant]
  14. HYDROCHLOROTHIAZIDE [Concomitant]
  15. DULCOLAX [Concomitant]
  16. FLUTICASONE                        /00972202/ [Concomitant]
  17. FLUNISOLIDE [Concomitant]
  18. FISH OIL [Concomitant]

REACTIONS (6)
  - CARDIAC DISORDER [None]
  - AORTIC VALVE STENOSIS [None]
  - COAGULOPATHY [None]
  - RIGHT VENTRICULAR DYSFUNCTION [None]
  - PLEURAL EFFUSION [None]
  - HAEMORRHAGE [None]
